FAERS Safety Report 6432312-4 (Version None)
Quarter: 2009Q4

REPORT INFORMATION
  Report Type: 
  Country: None (occurrence: None)
  Receive Date: 20091109
  Receipt Date: 20091029
  Transmission Date: 20100525
  Serious: Yes (Hospitalization)
  Sender: FDA-Public Use
  Company Number: US-CUBIST-2009S1000463

PATIENT
  Age: 24 Year
  Sex: Female
  Weight: 70 kg

DRUGS (9)
  1. CUBICIN [Suspect]
     Indication: STAPHYLOCOCCAL BACTERAEMIA
     Route: 042
     Dates: start: 20081111, end: 20081218
  2. CUBICIN [Suspect]
     Indication: ENDOCARDITIS
     Route: 042
     Dates: start: 20081111, end: 20081218
  3. OXYCODONE [Concomitant]
     Route: 042
  4. DEMEROL [Concomitant]
     Route: 042
  5. RITALIN [Concomitant]
     Route: 042
  6. ZOSYN [Concomitant]
     Indication: STAPHYLOCOCCAL BACTERAEMIA
  7. LEVAQUIN [Concomitant]
     Indication: STAPHYLOCOCCAL BACTERAEMIA
  8. VANCOMYCIN [Concomitant]
     Indication: STAPHYLOCOCCAL BACTERAEMIA
  9. NAFCILLIN [Concomitant]
     Indication: DRUG USE FOR UNKNOWN INDICATION

REACTIONS (2)
  - BREECH PRESENTATION [None]
  - DRUG EXPOSURE DURING PREGNANCY [None]
